FAERS Safety Report 6023146-3 (Version None)
Quarter: 2008Q4

REPORT INFORMATION
  Report Type: 
  Country: None (occurrence: None)
  Receive Date: 20081230
  Receipt Date: 20081223
  Transmission Date: 20090506
  Serious: Yes (Death)
  Sender: FDA-Public Use
  Company Number: A0761655A

PATIENT
  Sex: Male
  Weight: 50 kg

DRUGS (1)
  1. SERETIDE [Suspect]
     Indication: DRUG USE FOR UNKNOWN INDICATION
     Dates: start: 20081101

REACTIONS (4)
  - DEATH [None]
  - EMBOLISM [None]
  - EMPHYSEMA [None]
  - THROMBOSIS [None]
